FAERS Safety Report 7987710-4 (Version None)
Quarter: 2011Q4

REPORT INFORMATION
  Report Type: 
  Country: None (occurrence: None)
  Receive Date: 20111216
  Receipt Date: 20110428
  Transmission Date: 20120403
  Serious: Yes (Other)
  Sender: FDA-Public Use
  Company Number: US-BRISTOL-MYERS SQUIBB COMPANY-15705577

PATIENT
  Age: 34 Year
  Sex: Male

DRUGS (2)
  1. ABILIFY [Suspect]
     Indication: BIPOLAR DISORDER
     Dosage: DOSE REDUCED TO 5MG
     Dates: start: 20110301
  2. ABILIFY [Suspect]
     Indication: SCHIZOAFFECTIVE DISORDER
     Dosage: DOSE REDUCED TO 5MG
     Dates: start: 20110301

REACTIONS (8)
  - TREMOR [None]
  - AKATHISIA [None]
  - AGITATION [None]
  - SOMNOLENCE [None]
  - INSOMNIA [None]
  - SPEECH DISORDER [None]
  - AMNESIA [None]
  - DISTURBANCE IN ATTENTION [None]
